FAERS Safety Report 20201739 (Version 1)
Quarter: 2021Q4

REPORT INFORMATION
  Report Type: Spontaneous
  Country: KR (occurrence: KR)
  Receive Date: 20211217
  Receipt Date: 20211217
  Transmission Date: 20220303
  Serious: Yes (Other)
  Sender: FDA-Public Use
  Company Number: KR-Fresenius Kabi-FK202114030

PATIENT
  Age: 18 Year
  Sex: Male

DRUGS (3)
  1. DEXAMETHASONE [Suspect]
     Active Substance: DEXAMETHASONE
     Indication: Sudden hearing loss
     Route: 050
  2. TOZINAMERAN [Suspect]
     Active Substance: TOZINAMERAN
     Indication: COVID-19 prophylaxis
     Dosage: SECOND DOSE
     Route: 065
  3. PREDNISOLONE [Suspect]
     Active Substance: PREDNISOLONE
     Indication: Sudden hearing loss
     Route: 048

REACTIONS (2)
  - Condition aggravated [Unknown]
  - Sudden hearing loss [Unknown]
